FAERS Safety Report 11023830 (Version 1)
Quarter: 2015Q2

REPORT INFORMATION
  Report Type: Spontaneous
  Country: HK (occurrence: HK)
  Receive Date: 20150413
  Receipt Date: 20150413
  Transmission Date: 20150821
  Serious: Yes (Hospitalization)
  Sender: FDA-Public Use
  Company Number: PHHY2015HK040871

PATIENT
  Age: 46 Year
  Sex: Female

DRUGS (1)
  1. AMITRIPTYLINE [Suspect]
     Active Substance: AMITRIPTYLINE
     Indication: PRODUCT USED FOR UNKNOWN INDICATION
     Route: 048

REACTIONS (6)
  - Coma [Unknown]
  - Shock [Unknown]
  - Overdose [Unknown]
  - Ventricular tachycardia [Unknown]
  - Pulse abnormal [Unknown]
  - Electrocardiogram QRS complex prolonged [Unknown]
